FAERS Safety Report 12805740 (Version 1)
Quarter: 2016Q4

REPORT INFORMATION
  Report Type: Spontaneous
  Country: JP (occurrence: JP)
  Receive Date: 20161004
  Receipt Date: 20161004
  Transmission Date: 20170207
  Serious: Yes (Death, Other)
  Sender: FDA-Public Use
  Company Number: JP-ROCHE-1838266

PATIENT

DRUGS (3)
  1. TEGAFUR [Concomitant]
     Active Substance: TEGAFUR
     Indication: GASTRIC CANCER
     Dosage: TEGAFUR/GIMERACIL/OTERACIL POTASSIUM COMBINED DRUG
     Route: 048
  2. OXALIPLATIN. [Concomitant]
     Active Substance: OXALIPLATIN
     Indication: GASTRIC CANCER
     Dosage: DOSAGE IS UNCERTAIN.
     Route: 041
  3. HERCEPTIN [Suspect]
     Active Substance: TRASTUZUMAB
     Indication: GASTRIC CANCER
     Route: 041

REACTIONS (6)
  - Chills [Unknown]
  - Pyrexia [Unknown]
  - Aneurysm ruptured [Unknown]
  - Subarachnoid haemorrhage [Fatal]
  - Cerebellar haemorrhage [Unknown]
  - Tremor [Unknown]
